FAERS Safety Report 17853984 (Version 1)
Quarter: 2020Q2

REPORT INFORMATION
  Report Type: Spontaneous
  Country: PT (occurrence: PT)
  Receive Date: 20200603
  Receipt Date: 20200603
  Transmission Date: 20200714
  Serious: Yes (Other)
  Sender: FDA-Public Use
  Company Number: PT-TEVA-2020-PT-1242817

PATIENT
  Age: 36 Year
  Sex: Female

DRUGS (3)
  1. URISPAS [Concomitant]
     Active Substance: FLAVOXATE HYDROCHLORIDE
     Indication: URINARY TRACT INFECTION
     Route: 048
  2. FLUTICASONE. [Concomitant]
     Active Substance: FLUTICASONE
  3. SULFAMETHOXAZOLE W/TRIMETHOPRIM [Suspect]
     Active Substance: SULFAMETHOXAZOLE\TRIMETHOPRIM
     Indication: URINARY TRACT INFECTION
     Dosage: 2 DOSAGE FORMS, 1CP 12 / 12H (COMPLETED THERAPY)
     Route: 048
     Dates: start: 20170712, end: 20170719

REACTIONS (1)
  - Rash maculo-papular [Recovered/Resolved]

NARRATIVE: CASE EVENT DATE: 20170717
